FAERS Safety Report 5594540-X (Version None)
Quarter: 2008Q1

REPORT INFORMATION
  Report Type: 
  Country: None (occurrence: None)
  Receive Date: 20080117
  Receipt Date: 20080109
  Transmission Date: 20080703
  Serious: Yes (Disabling, Other)
  Sender: FDA-Public Use
  Company Number: CH-RB-008971-08

PATIENT
  Age: 24 Hour
  Sex: Female

DRUGS (3)
  1. SUBUTEX [Suspect]
     Indication: DRUG WITHDRAWAL MAINTENANCE THERAPY
     Route: 064
     Dates: start: 20060701
  2. SUBUTEX [Suspect]
     Route: 064
     Dates: end: 20061213
  3. METHADONE HCL [Suspect]
     Indication: DRUG WITHDRAWAL MAINTENANCE THERAPY
     Route: 064
     Dates: start: 20060201, end: 20060701

REACTIONS (4)
  - DRUG EXPOSURE DURING PREGNANCY [None]
  - DRUG WITHDRAWAL SYNDROME NEONATAL [None]
  - SINUS BRADYCARDIA [None]
  - TALIPES [None]
